FAERS Safety Report 18465107 (Version 24)
Quarter: 2025Q2

REPORT INFORMATION
  Report Type: Report from Study
  Country: US (occurrence: US)
  Receive Date: 20201104
  Receipt Date: 20250429
  Transmission Date: 20250717
  Serious: Yes (Hospitalization, Other)
  Sender: TAKEDA
  Company Number: US-TAKEDA-2020TUS047426

PATIENT
  Age: 79 Year
  Sex: Female
  Weight: 64 kg

DRUGS (25)
  1. TEDUGLUTIDE [Suspect]
     Active Substance: TEDUGLUTIDE
     Indication: Short-bowel syndrome
     Dosage: 0.322 MILLILITER, QD
     Dates: start: 20200714
  2. TEDUGLUTIDE [Suspect]
     Active Substance: TEDUGLUTIDE
     Dosage: 0.322 MILLILITER, QD
     Dates: start: 20201010
  3. TEDUGLUTIDE [Suspect]
     Active Substance: TEDUGLUTIDE
     Dosage: 0.322 MILLILITER, QD
  4. TEDUGLUTIDE [Suspect]
     Active Substance: TEDUGLUTIDE
     Dosage: 0.322 MILLILITER, QD
  5. TEDUGLUTIDE [Suspect]
     Active Substance: TEDUGLUTIDE
     Dosage: 3.2 MILLIGRAM, QD
  6. TEDUGLUTIDE [Suspect]
     Active Substance: TEDUGLUTIDE
     Dosage: 3.2 MILLIGRAM, QD
  7. TEDUGLUTIDE [Suspect]
     Active Substance: TEDUGLUTIDE
     Dosage: 3.2 MILLIGRAM, QD
  8. TEDUGLUTIDE [Suspect]
     Active Substance: TEDUGLUTIDE
     Dosage: 3.2 MILLIGRAM, QD
  9. TEDUGLUTIDE [Suspect]
     Active Substance: TEDUGLUTIDE
     Dosage: 3.2 MILLIGRAM, QD
  10. TEDUGLUTIDE [Suspect]
     Active Substance: TEDUGLUTIDE
     Dosage: 3.2 MILLIGRAM, QD
  11. OPIUM TINCTURE [Concomitant]
     Active Substance: MORPHINE
  12. MAGNESIUM OXIDE [Concomitant]
     Active Substance: MAGNESIUM OXIDE
  13. LOPERAMIDE [Concomitant]
     Active Substance: LOPERAMIDE
  14. FERROUS SULFATE [Concomitant]
     Active Substance: FERROUS SULFATE
  15. DULOXETINE HYDROCHLORIDE [Concomitant]
     Active Substance: DULOXETINE HYDROCHLORIDE
  16. ATROPINE\DIPHENOXYLATE [Concomitant]
     Active Substance: ATROPINE\DIPHENOXYLATE
  17. VITAMIN D3 [Concomitant]
     Active Substance: CHOLECALCIFEROL
  18. ZYRTEC [Concomitant]
     Active Substance: CETIRIZINE HYDROCHLORIDE
  19. ARIPIPRAZOLE [Concomitant]
     Active Substance: ARIPIPRAZOLE
  20. SALINE [Concomitant]
     Active Substance: SODIUM CHLORIDE
  21. PREGABALIN [Concomitant]
     Active Substance: PREGABALIN
  22. MOXATAG [Concomitant]
     Active Substance: AMOXICILLIN
  23. FENTANYL [Concomitant]
     Active Substance: FENTANYL
  24. PREDNISONE [Concomitant]
     Active Substance: PREDNISONE
  25. ADALIMUMAB [Concomitant]
     Active Substance: ADALIMUMAB

REACTIONS (17)
  - Infection [Not Recovered/Not Resolved]
  - Dehydration [Unknown]
  - Pancreatic failure [Unknown]
  - Pneumonia viral [Unknown]
  - Trigger finger [Unknown]
  - Gallbladder disorder [Unknown]
  - Myalgia [Unknown]
  - Pancreatic disorder [Unknown]
  - Pain [Unknown]
  - Illness [Unknown]
  - Weight decreased [Unknown]
  - Liver function test increased [Unknown]
  - Post procedural infection [Unknown]
  - Product dose omission issue [Unknown]
  - Product dose omission in error [Unknown]
  - Product use issue [Unknown]
  - Nasopharyngitis [Unknown]

NARRATIVE: CASE EVENT DATE: 20221013
